FAERS Safety Report 6781681-4 (Version None)
Quarter: 2010Q2

REPORT INFORMATION
  Report Type: 
  Country: None (occurrence: None)
  Receive Date: 20100617
  Receipt Date: 20100617
  Transmission Date: 20101027
  Serious: Yes (Hospitalization)
  Sender: FDA-Public Use
  Company Number: None

PATIENT
  Sex: Male
  Weight: 85.4 kg

DRUGS (6)
  1. INTERFERON [Suspect]
     Indication: METASTATIC MALIGNANT MELANOMA
     Dosage: 42 MILLION UNITS - 20 MIL/BSA 3X PER WEEK IM
     Route: 030
     Dates: start: 20100224, end: 20100311
  2. ASPIRIN [Concomitant]
  3. CARVEDILOL [Concomitant]
  4. CLOPIDOGREL [Concomitant]
  5. GABAPENTIN [Concomitant]
  6. SIMVASTATIN [Concomitant]

REACTIONS (4)
  - CARDIOMYOPATHY [None]
  - DEHYDRATION [None]
  - ENTEROCOLITIS [None]
  - RENAL FAILURE ACUTE [None]
